FAERS Safety Report 5887194-6 (Version None)
Quarter: 2008Q3

REPORT INFORMATION
  Report Type: 
  Country: None (occurrence: None)
  Receive Date: 20080915
  Receipt Date: 20080904
  Transmission Date: 20090109
  Serious: Yes (Other)
  Sender: FDA-Public Use
  Company Number: GXKR2008GB08475

PATIENT
  Age: 37 Year
  Sex: Female

DRUGS (2)
  1. DOXYCYCLINE [Suspect]
     Indication: ENDOMETRIOSIS
  2. FLAGYL [Suspect]
     Indication: ENDOMETRIOSIS
     Dosage: 400 MG, TID, ORAL
     Route: 048
     Dates: start: 20080717, end: 20080724

REACTIONS (3)
  - DRUG EXPOSURE DURING PREGNANCY [None]
  - ULTRASOUND SCAN ABNORMAL [None]
  - UNINTENDED PREGNANCY [None]
